FAERS Safety Report 6998627-6 (Version None)
Quarter: 2010Q3

REPORT INFORMATION
  Report Type: 
  Country: None (occurrence: None)
  Receive Date: 20100920
  Receipt Date: 20071003
  Transmission Date: 20110219
  Serious: Yes (Other)
  Sender: FDA-Public Use
  Company Number: US-ASTRAZENECA-2006UW23597

PATIENT
  Age: 46 Year
  Sex: Female
  Weight: 99.3 kg

DRUGS (13)
  1. SEROQUEL [Suspect]
     Indication: BIPOLAR DISORDER
     Route: 048
     Dates: start: 19990101
  2. SEROQUEL [Suspect]
     Dosage: 50 MG - 400 MG
     Route: 048
     Dates: start: 19991117
  3. RISPERDAL [Concomitant]
     Dates: start: 19970101, end: 20000101
  4. ZYPREXA [Concomitant]
     Dates: start: 19970101, end: 20000101
  5. LITHIUM CARBONATE [Concomitant]
     Dosage: 450 - 900 MG
     Route: 048
     Dates: start: 20001116
  6. BURTON [Concomitant]
  7. NORVASC [Concomitant]
     Dates: start: 20031030
  8. PREVACID [Concomitant]
     Route: 048
     Dates: start: 19991117
  9. WELLBUTRIN SR [Concomitant]
     Dates: start: 19991117
  10. VALIUM [Concomitant]
     Dosage: 10 MG - 15 MG
     Dates: start: 19991117
  11. PRINIVIL [Concomitant]
     Dates: start: 20031030
  12. CELEXA [Concomitant]
     Dates: start: 19991117
  13. KLONOPIN [Concomitant]
     Route: 048
     Dates: start: 20031103

REACTIONS (2)
  - DIABETES MELLITUS [None]
  - PANCREATITIS [None]
